FAERS Safety Report 7648736-3 (Version None)
Quarter: 2011Q3

REPORT INFORMATION
  Report Type: 
  Country: None (occurrence: None)
  Receive Date: 20110801
  Receipt Date: 20110725
  Transmission Date: 20111222
  Serious: Yes (Hospitalization)
  Sender: FDA-Public Use
  Company Number: PHHY2011US49609

PATIENT
  Age: 46 Year
  Sex: Female
  Weight: 135 kg

DRUGS (6)
  1. GLATIRAMER ACETATE [Concomitant]
  2. EXTAVIA [Suspect]
     Route: 058
  3. NATALIZUMAB [Concomitant]
  4. INTERFERON BETA-1A [Concomitant]
     Route: 058
  5. PREDNISONE [Concomitant]
     Dosage: 20 MG, DAILY
     Route: 048
     Dates: start: 20110723
  6. INTERFERON BETA-1A [Concomitant]
     Route: 030

REACTIONS (4)
  - FATIGUE [None]
  - INFLUENZA LIKE ILLNESS [None]
  - MIGRAINE [None]
  - RESPIRATORY DISORDER [None]
